FAERS Safety Report 18369480 (Version 1)
Quarter: 2020Q4

REPORT INFORMATION
  Report Type: Report from Study
  Country: FR (occurrence: FR)
  Receive Date: 20201012
  Receipt Date: 20201012
  Transmission Date: 20210114
  Serious: Yes (Hospitalization)
  Sender: FDA-Public Use
  Company Number: FR-ROCHE-2194992

PATIENT
  Age: 51 Year
  Sex: Male
  Weight: 104 kg

DRUGS (11)
  1. NOVORAPID [Concomitant]
     Active Substance: INSULIN ASPART
     Dosage: 1 INTERNATIONAL UNIT AT 08:00 A.M., 1 INTERNATIONAL UNIT AT 12:00 P.M., 1 INTERNATIONAL UNIT AT 06:0
     Route: 058
     Dates: start: 20181004
  2. OROZAMUDOL [Concomitant]
     Active Substance: TRAMADOL
     Indication: PAIN
     Dosage: 1 TABLET PER DOSE 4 TIMES/DAY AT 08:00 A.M., 12:00 P.M., 06:00 P.M.,10:00 P.M.(AS NEEDED)
     Route: 048
     Dates: start: 20181004
  3. EUCREAS [Concomitant]
     Active Substance: METFORMIN HYDROCHLORIDE\VILDAGLIPTIN
     Dosage: 1 TABLET AT 08:00 A.M., 1 TABLET AT 06:00 P.M.
     Route: 048
     Dates: start: 20181004
  4. SEROPLEX [Concomitant]
     Active Substance: ESCITALOPRAM OXALATE
     Dosage: 1 TABLET AT 08:00 A.M.
     Route: 048
  5. ENTRECTINIB [Suspect]
     Active Substance: ENTRECTINIB
     Indication: NEOPLASM
     Route: 048
     Dates: start: 20180313, end: 20180924
  6. METEOSPASMYL [Concomitant]
     Dosage: 1 CAPSULE AT 08:00 A.M., 1 CAPSULE AT 12:00 P.M., 1 CAPSULE AT 06:00 P.M.
     Route: 048
     Dates: start: 20181004
  7. INNOHEP [Concomitant]
     Active Substance: TINZAPARIN SODIUM
     Route: 058
     Dates: start: 20181004
  8. DOLIPRANE [Concomitant]
     Active Substance: ACETAMINOPHEN
     Indication: PAIN
     Dosage: 2 CAPSULES EVERY 6 HOURS
     Route: 048
     Dates: start: 20181004
  9. XANAX [Concomitant]
     Active Substance: ALPRAZOLAM
     Indication: INSOMNIA
     Dosage: 1 TABLET AT 10:00 P.M. AS REQUIRED
     Route: 048
     Dates: start: 20181004
  10. MOTILIUM [Concomitant]
     Active Substance: DOMPERIDONE
     Dosage: 1 TABLET AT 06:00 A.M., 1 TABLET AT 12:00 P.M., 1 TABLET AT 06:00 P.M.
     Route: 048
     Dates: start: 20181004
  11. LIPANTHYL [Concomitant]
     Active Substance: FENOFIBRATE
     Dosage: 1 TABLET AT 08:00 A.M. FOR 15 DAYS
     Route: 048
     Dates: start: 20181004

REACTIONS (1)
  - Hypertriglyceridaemia [Not Recovered/Not Resolved]

NARRATIVE: CASE EVENT DATE: 20181001
